FAERS Safety Report 8782096 (Version 2)
Quarter: 2012Q4

REPORT INFORMATION
  Report Type: Report from Study
  Country: US (occurrence: US)
  Receive Date: 20120913
  Receipt Date: 20120921
  Transmission Date: 20130627
  Serious: Yes (Hospitalization)
  Sender: FDA-Public Use
  Company Number: US-PURDUE-USA-2012-0092683

PATIENT
  Sex: Female

DRUGS (4)
  1. OXYCONTIN (NDA 22-272) [Suspect]
     Indication: SARCOIDOSIS
     Dosage: 90 mg, bid
     Route: 048
     Dates: end: 201207
  2. OXYCONTIN (NDA 22-272) [Suspect]
     Indication: ARTHRALGIA
  3. OXYCONTIN (NDA 22-272) [Suspect]
     Indication: PAIN
  4. MS CONTIN [Suspect]
     Indication: PAIN
     Dosage: UNK
     Route: 048
     Dates: start: 201207

REACTIONS (4)
  - Sarcoidosis [Recovered/Resolved]
  - Blindness [Unknown]
  - Eye swelling [Unknown]
  - Oedema peripheral [Unknown]
